FAERS Safety Report 14526794 (Version 3)
Quarter: 2018Q2

REPORT INFORMATION
  Report Type: Spontaneous
  Country: IT (occurrence: IT)
  Receive Date: 20180213
  Receipt Date: 20180405
  Transmission Date: 20180711
  Serious: Yes (Other)
  Sender: FDA-Public Use
  Company Number: IT-BAUSCH-BL-2018-003827

PATIENT
  Age: 5 Year
  Sex: Male

DRUGS (9)
  1. VINCRISTINE SULFATE. [Suspect]
     Active Substance: VINCRISTINE SULFATE
     Indication: ACUTE LYMPHOCYTIC LEUKAEMIA
     Dosage: (PROTOCOL II CHEMOTHERAPY)
     Route: 065
  2. PEG-L-ASPARAGINASE [Suspect]
     Active Substance: PEGASPARGASE
     Indication: ACUTE LYMPHOCYTIC LEUKAEMIA
     Dosage: (PROTOCOL II CHEMOTHERAPY)
     Route: 065
  3. METHOTREXATE. [Suspect]
     Active Substance: METHOTREXATE
     Indication: ACUTE LYMPHOCYTIC LEUKAEMIA
     Dosage: (PROTOCOL II CHEMOTHERAPY)
     Route: 037
  4. PREDNISONE. [Suspect]
     Active Substance: PREDNISONE
     Indication: ACUTE LYMPHOCYTIC LEUKAEMIA
     Dosage: (HIGH DOSE)
     Route: 065
  5. CYCLOPHOSPHAMIDE. [Suspect]
     Active Substance: CYCLOPHOSPHAMIDE
     Indication: ACUTE LYMPHOCYTIC LEUKAEMIA
     Dosage: (PROTOCOL II CHEMOTHERAPY)
     Route: 065
  6. CYTARABINE. [Suspect]
     Active Substance: CYTARABINE
     Indication: ACUTE LYMPHOCYTIC LEUKAEMIA
     Dosage: (PROTOCOL II CHEMOTHERAPY)
     Route: 065
  7. DEXAMETHASONE SODIUM PHOSPHATE. [Suspect]
     Active Substance: DEXAMETHASONE SODIUM PHOSPHATE
     Indication: ACUTE LYMPHOCYTIC LEUKAEMIA
     Dosage: UNK (PROTOCOL II CHEMOTHERAPY) ()
     Route: 065
  8. THIOGUANINE [Suspect]
     Active Substance: THIOGUANINE
     Indication: ACUTE LYMPHOCYTIC LEUKAEMIA
     Dosage: (PROTOCOL II CHEMOTHERAPY)
     Route: 065
  9. DOXORUBICIN HYDROCHLORIDE. [Suspect]
     Active Substance: DOXORUBICIN HYDROCHLORIDE
     Indication: ACUTE LYMPHOCYTIC LEUKAEMIA
     Dosage: (PROTOCOL II CHEMOTHERAPY)
     Route: 065

REACTIONS (13)
  - Hypotension [Recovering/Resolving]
  - Hepatomegaly [Recovered/Resolved]
  - Oliguria [Recovering/Resolving]
  - Weight increased [Recovered/Resolved]
  - Toxicity to various agents [Recovering/Resolving]
  - Alanine aminotransferase increased [Recovered/Resolved]
  - Venoocclusive liver disease [Recovered/Resolved]
  - Aspartate aminotransferase increased [Recovered/Resolved]
  - Blood bilirubin increased [Recovered/Resolved]
  - Liver tenderness [Recovered/Resolved]
  - Ascites [Recovered/Resolved]
  - Pyrexia [Unknown]
  - Vomiting [Unknown]
